FAERS Safety Report 11287804 (Version 2)
Quarter: 2015Q3

REPORT INFORMATION
  Report Type: Spontaneous
  Country: TR (occurrence: TR)
  Receive Date: 20150721
  Receipt Date: 20150722
  Transmission Date: 20151125
  Serious: Yes (Hospitalization)
  Sender: FDA-Public Use
  Company Number: TR-TEVA-580219ISR

PATIENT
  Age: 48 Year
  Sex: Female

DRUGS (2)
  1. SERTRALINE [Suspect]
     Active Substance: SERTRALINE HYDROCHLORIDE
     Indication: DEPRESSION
  2. VARENICLINE [Interacting]
     Active Substance: VARENICLINE
     Indication: SMOKING CESSATION THERAPY

REACTIONS (2)
  - Drug interaction [Unknown]
  - Mania [Unknown]
